FAERS Safety Report 25795311 (Version 1)
Quarter: 2025Q3

REPORT INFORMATION
  Report Type: Spontaneous
  Country: EU (occurrence: EU)
  Receive Date: 20250912
  Receipt Date: 20250912
  Transmission Date: 20251020
  Serious: Yes (Death, Hospitalization)
  Sender: TEVA
  Company Number: None

PATIENT
  Age: 60 Year
  Sex: Male

DRUGS (10)
  1. CARBOPLATIN [Suspect]
     Active Substance: CARBOPLATIN
     Indication: Lung carcinoma cell type unspecified stage IV
     Route: 042
     Dates: start: 20250321, end: 20250321
  2. XIGDUO XR [Concomitant]
     Active Substance: DAPAGLIFLOZIN PROPANEDIOL\METFORMIN HYDROCHLORIDE
     Indication: Type 2 diabetes mellitus
     Dosage: 1 CAP EVERY 12 HOURS; 5 MG/1000 MG, 56 TABLETS
     Route: 048
     Dates: start: 20241010
  3. CYANOCOBALAMIN [Concomitant]
     Active Substance: CYANOCOBALAMIN
     Indication: Chemotherapy side effect prophylaxis
     Dosage: 1 INJECTABLE EVERY 3 MONTHS; 5 AMPOULES OF 2 ML
     Route: 030
     Dates: start: 20250317
  4. PALEXIA [Concomitant]
     Active Substance: TAPENTADOL HYDROCHLORIDE
     Indication: Cancer pain
     Dosage: 1 CAP EVERY 24 HOURS; 60 TABLETS
     Route: 048
     Dates: start: 20250317
  5. PALEXIA [Concomitant]
     Active Substance: TAPENTADOL HYDROCHLORIDE
     Indication: Cancer pain
     Dosage: 1 CAP EVERY 12 HOURS; 60 TABLETS
     Route: 048
     Dates: start: 20250215
  6. PEMBROLIZUMAB [Suspect]
     Active Substance: PEMBROLIZUMAB
     Indication: Lung carcinoma cell type unspecified stage IV
     Route: 042
     Dates: start: 20250321, end: 20250321
  7. PEMETREXED [Suspect]
     Active Substance: PEMETREXED
     Indication: Lung carcinoma cell type unspecified stage IV
     Route: 042
     Dates: start: 20250321, end: 20250321
  8. DEXAMETASONA ABDRUG [Concomitant]
     Indication: Chemotherapy side effect prophylaxis
     Dosage: 1 CAP EVERY 12 HOURS; 30 TABLETS
     Route: 048
     Dates: start: 20250317
  9. OMEPRAZOLE [Concomitant]
     Active Substance: OMEPRAZOLE
     Indication: Product used for unknown indication
     Dosage: 1 CAP EVERY 24 HOURS; 56 CAPSULES (PVC/PE/PVDC/AL)
     Route: 048
     Dates: start: 20250317
  10. ZOLICO [Concomitant]
     Indication: Chemotherapy side effect prophylaxis
     Dosage: 1 CAP EVERY 24 HOURS; 28 TABLETS
     Route: 048
     Dates: start: 20250317

REACTIONS (3)
  - Pancytopenia [Fatal]
  - Pharyngeal inflammation [Fatal]
  - Rectal haemorrhage [Fatal]

NARRATIVE: CASE EVENT DATE: 20250402
